FAERS Safety Report 20324011 (Version 3)
Quarter: 2022Q1

REPORT INFORMATION
  Report Type: Report from Study
  Country: US (occurrence: US)
  Receive Date: 20220111
  Receipt Date: 20220307
  Transmission Date: 20220424
  Serious: Yes (Hospitalization)
  Sender: FDA-Public Use
  Company Number: US-PFIZER INC-202101549522

PATIENT
  Age: 66 Year
  Sex: Female
  Weight: 49.4 kg

DRUGS (4)
  1. PF-06863135 [Suspect]
     Active Substance: PF-06863135
     Indication: Plasma cell myeloma
     Dosage: 12 MG, ONCE (1X/DAY)
     Route: 058
     Dates: start: 20211025, end: 20211025
  2. PF-06863135 [Suspect]
     Active Substance: PF-06863135
     Dosage: 32 MG, ONCE (1X/DAY)
     Route: 058
     Dates: start: 20211029, end: 20211029
  3. PF-06863135 [Suspect]
     Active Substance: PF-06863135
     Dosage: 76 MG, WEEKLY
     Route: 058
     Dates: start: 20211102
  4. NIFEDIPINE [Suspect]
     Active Substance: NIFEDIPINE
     Indication: Hypertension
     Dosage: 30 MG, ONCE DAILY (Q24H)
     Route: 048
     Dates: start: 20211026, end: 20211109

REACTIONS (1)
  - Cytokine release syndrome [Recovered/Resolved]

NARRATIVE: CASE EVENT DATE: 20211109
